FAERS Safety Report 22901899 (Version 4)
Quarter: 2025Q1

REPORT INFORMATION
  Report Type: Spontaneous
  Country: US (occurrence: US)
  Receive Date: 20230904
  Receipt Date: 20250207
  Transmission Date: 20250409
  Serious: Yes (Death, Other)
  Sender: SANOFI AVENTIS
  Company Number: US-SA-SAC20230829000901

PATIENT
  Age: 81 Year
  Sex: Female

DRUGS (1)
  1. FABRAZYME [Suspect]
     Active Substance: AGALSIDASE BETA
     Indication: Fabry^s disease
     Route: 065

REACTIONS (3)
  - Death [Fatal]
  - Globotriaosylsphingosine increased [Unknown]
  - Drug specific antibody present [Unknown]

NARRATIVE: CASE EVENT DATE: 20230809
